FAERS Safety Report 19170194 (Version 1)
Quarter: 2021Q2

REPORT INFORMATION
  Report Type: Spontaneous
  Country: FR (occurrence: FR)
  Receive Date: 20210422
  Receipt Date: 20210422
  Transmission Date: 20210717
  Serious: Yes (Death, Hospitalization)
  Sender: FDA-Public Use
  Company Number: FR-PFIZER INC-2021409508

PATIENT
  Age: 73 Year
  Sex: Female
  Weight: 59.3 kg

DRUGS (13)
  1. LEVODOPA/CARBIDOPA TEVA [Concomitant]
     Active Substance: CARBIDOPA\LEVODOPA
     Dosage: 1 DF, 1X/DAY
     Route: 048
  2. CLOZAPINE. [Suspect]
     Active Substance: CLOZAPINE
     Indication: HALLUCINATION
     Dosage: 12.5 MG, 1X/DAY
     Route: 048
     Dates: start: 201710
  3. XANAX [Concomitant]
     Active Substance: ALPRAZOLAM
     Dosage: 2 DF, 1X/DAY
     Route: 048
  4. PHOSPHONEUROS [Concomitant]
     Active Substance: CALCIUM PHOSPHATE, DIBASIC, ANHYDROUS\MAGNESIUM GLYCEROPHOSPHATE\PHOSPHORIC ACID\SODIUM PHOSPHATE, DIBASIC
     Dosage: 100 DROP, 1X/DAY
     Route: 048
  5. SPASFON [PHLOROGLUCINOL;TRIMETHYLPHLOROGLUCINOL] [Concomitant]
     Active Substance: PHLOROGLUCINOL\1,3,5-TRIMETHOXYBENZENE
     Dosage: 3 DF, 1X/DAY
     Route: 048
  6. DUODOPA INTESTINAL GEL [Concomitant]
     Active Substance: CARBIDOPA\LEVODOPA
     Dosage: 6 ML, FREQ:1 H
     Route: 050
     Dates: start: 20190420
  7. VALIUM [Concomitant]
     Active Substance: DIAZEPAM
     Dosage: 1 DF, 1X/DAY
     Route: 048
     Dates: start: 20190418
  8. MODOPAR [Concomitant]
     Active Substance: BENSERAZIDE HYDROCHLORIDE\LEVODOPA
     Dosage: UNK
     Route: 048
  9. PIPERACILLIN/TAZOBACTAM [Suspect]
     Active Substance: PIPERACILLIN SODIUM\TAZOBACTAM SODIUM
     Indication: LUNG DISORDER
     Dosage: 500 MG/4 G, FREQ:8 H
     Route: 042
     Dates: start: 20190420, end: 20190427
  10. CIFLOX [Suspect]
     Active Substance: CIPROFLOXACIN
     Indication: LUNG DISORDER
     Dosage: 2 DF, 1X/DAY
     Route: 048
     Dates: start: 20190421, end: 20190428
  11. ALPRAZOLAM. [Concomitant]
     Active Substance: ALPRAZOLAM
     Dosage: 1.5 DF, 1X/DAY
     Route: 048
     Dates: start: 20190418
  12. SCOPOLAMIN [Concomitant]
     Active Substance: SCOPOLAMINE
     Dosage: 3 DF, 1X/DAY
     Route: 003
     Dates: start: 20190420
  13. DAFALGAN [Concomitant]
     Active Substance: ACETAMINOPHEN
     Dosage: UNK
     Route: 054

REACTIONS (3)
  - Leukopenia [Fatal]
  - Anaemia [Fatal]
  - Thrombocytopenia [Recovered/Resolved]

NARRATIVE: CASE EVENT DATE: 20190423
